FAERS Safety Report 15072999 (Version 1)
Quarter: 2018Q2

REPORT INFORMATION
  Report Type: Spontaneous
  Country: GB (occurrence: GB)
  Receive Date: 20180627
  Receipt Date: 20180627
  Transmission Date: 20180711
  Serious: Yes (Disabling)
  Sender: FDA-Public Use
  Company Number: GB-TEVA-2018-GB-912388

PATIENT
  Age: 37 Year
  Sex: Male
  Weight: 79 kg

DRUGS (8)
  1. CODEINE [Suspect]
     Active Substance: CODEINE
     Route: 065
     Dates: start: 20180509
  2. NAPROXEN. [Concomitant]
     Active Substance: NAPROXEN
     Indication: JOINT SWELLING
     Dosage: 2 DOSAGE FORMS DAILY; WITH FOOD
     Dates: start: 20171002, end: 20180307
  3. PARACETAMOL [Concomitant]
     Active Substance: ACETAMINOPHEN
     Dosage: 1 OR 2  TABLETS TO BE TAKEN 3 TO 4 TIMES A DAY
     Dates: start: 20180507
  4. TRAMADOL. [Concomitant]
     Active Substance: TRAMADOL
     Dates: start: 20180223, end: 20180302
  5. LACTULOSE. [Concomitant]
     Active Substance: LACTULOSE
     Dosage: 30 ML DAILY; THREE 5MLS SPOONFULS.
     Dates: start: 20180306, end: 20180309
  6. IBUPROFEN. [Concomitant]
     Active Substance: IBUPROFEN
     Dates: start: 20180406, end: 20180504
  7. COCODAMOL [Suspect]
     Active Substance: ACETAMINOPHEN\CODEINE PHOSPHATE
     Route: 048
     Dates: start: 20180502, end: 20180504
  8. MIRTAZAPINE. [Concomitant]
     Active Substance: MIRTAZAPINE
     Dosage: USE AS DIRECTED
     Dates: start: 20150729

REACTIONS (4)
  - Drug hypersensitivity [Unknown]
  - Nausea [Recovered/Resolved]
  - Abdominal pain upper [Unknown]
  - Diarrhoea [Unknown]

NARRATIVE: CASE EVENT DATE: 20180509
